FAERS Safety Report 14265932 (Version 1)
Quarter: 2017Q4

REPORT INFORMATION
  Report Type: Spontaneous
  Country: KP (occurrence: KP)
  Receive Date: 20171209
  Receipt Date: 20171209
  Transmission Date: 20180321
  Serious: Yes (Other)
  Sender: FDA-Public Use
  Company Number: KP-CIPLA LTD.-2017KP22297

PATIENT

DRUGS (14)
  1. VANCOMYCIN [Suspect]
     Active Substance: VANCOMYCIN
     Dosage: UNK
     Route: 065
  2. PHENOBARBITAL. [Suspect]
     Active Substance: PHENOBARBITAL
     Indication: PARTIAL SEIZURES
     Dosage: 10 MG/KG, LOADING DOSE
     Route: 042
  3. MIDAZOLAM [Suspect]
     Active Substance: MIDAZOLAM HYDROCHLORIDE
     Dosage: UNK
  4. EPINEPHRINE. [Concomitant]
     Active Substance: EPINEPHRINE
     Dosage: UNK, TOTAL DOSE OF 3 MG
     Route: 042
  5. LANSOPRAZOLE. [Concomitant]
     Active Substance: LANSOPRAZOLE
     Dosage: UNK
     Route: 065
  6. LEVETIRACETAM. [Suspect]
     Active Substance: LEVETIRACETAM
     Dosage: 750 MG, BID
     Route: 065
  7. TOPIRAMATE. [Suspect]
     Active Substance: TOPIRAMATE
     Indication: PARTIAL SEIZURES
     Dosage: 200 MG, UNK
     Route: 065
  8. TOPIRAMATE. [Suspect]
     Active Substance: TOPIRAMATE
     Dosage: 100 UNK, UNK
     Route: 065
  9. PHENOBARBITAL. [Suspect]
     Active Substance: PHENOBARBITAL
     Dosage: 30 MG, UNK
     Route: 042
  10. ATROPINE. [Concomitant]
     Active Substance: ATROPINE
     Dosage: UNK, TOTAL DOSE OF 1.5 MG
     Route: 042
  11. SALBUTAMOL [Concomitant]
     Active Substance: ALBUTEROL
     Dosage: UNK
     Route: 065
  12. LEVETIRACETAM. [Suspect]
     Active Substance: LEVETIRACETAM
     Indication: PARTIAL SEIZURES
     Dosage: UNK, LOADING DOSE OF 2,000 MG, FOLLOWED BY 1,000 MG ADMINISTRATION TWICE DAILY
     Route: 042
  13. ACETYLCYSTEINE. [Concomitant]
     Active Substance: ACETYLCYSTEINE
     Dosage: UNK
     Route: 065
  14. CILOSTAZOL. [Concomitant]
     Active Substance: CILOSTAZOL
     Dosage: 200 MG, UNK
     Route: 065

REACTIONS (3)
  - Thrombocytopenia [Recovered/Resolved]
  - Stupor [Unknown]
  - Cardiac arrest [Recovering/Resolving]
